FAERS Safety Report 6589043-X (Version None)
Quarter: 2010Q1

REPORT INFORMATION
  Report Type: 
  Country: None (occurrence: None)
  Receive Date: 20100218
  Receipt Date: 20100209
  Transmission Date: 20100710
  Serious: Yes (Death)
  Sender: FDA-Public Use
  Company Number: JP-MERCK-1002USA01738

PATIENT
  Age: 60 Year
  Sex: Male
  Weight: 71 kg

DRUGS (3)
  1. JANUVIA [Suspect]
     Indication: DIABETES MELLITUS
     Route: 048
     Dates: start: 20091211
  2. NU-LOTAN [Concomitant]
     Route: 048
     Dates: start: 20020101
  3. MYSLEE [Concomitant]
     Route: 048
     Dates: start: 20070101

REACTIONS (6)
  - CARDIAC ARREST [None]
  - DECREASED APPETITE [None]
  - FALL [None]
  - GASTROINTESTINAL DISORDER [None]
  - RESPIRATORY ARREST [None]
  - SUDDEN DEATH [None]
